FAERS Safety Report 9559847 (Version 1)
Quarter: 2013Q3

REPORT INFORMATION
  Report Type: Spontaneous
  Country: US (occurrence: None)
  Receive Date: 20130821
  Receipt Date: 20130821
  Transmission Date: 20140515
  Serious: Yes (Other)
  Sender: FDA-Public Use
  Company Number: 1000046000

PATIENT
  Age: 82 Year
  Sex: Male

DRUGS (5)
  1. TUDORZA PRESSAIR (ACLIDINIUM BROMIDE) (400 MICROGRAM, POWDER) [Suspect]
     Indication: CHRONIC OBSTRUCTIVE PULMONARY DISEASE
     Dosage: 800 MCG (400 MCG, 2 IN 1 D), RESPIRATORY (INHALATION)
     Dates: start: 201305
  2. FORMOTEROL (FORMOTEROL) [Concomitant]
  3. METOPROLOL (METOPROLOL) [Concomitant]
  4. TERAZOSIN (TERAZOSIN) [Concomitant]
  5. IPRATROPIUM (IPRATROPIUM) [Concomitant]

REACTIONS (5)
  - Eye irritation [None]
  - Eye pain [None]
  - Dry skin [None]
  - Skin exfoliation [None]
  - Headache [None]
